FAERS Safety Report 16880056 (Version 7)
Quarter: 2020Q1

REPORT INFORMATION
  Report Type: Spontaneous
  Country: IT (occurrence: IT)
  Receive Date: 20191003
  Receipt Date: 20200325
  Transmission Date: 20200409
  Serious: Yes (Life-Threatening, Hospitalization, Other)
  Sender: FDA-Public Use
  Company Number: IT-ACCORD-156380

PATIENT
  Age: 55 Year
  Sex: Female
  Weight: 60 kg

DRUGS (13)
  1. TRAZODONE [Interacting]
     Active Substance: TRAZODONE HYDROCHLORIDE
     Indication: DEPRESSION
     Route: 065
     Dates: start: 20190728, end: 20190729
  2. LURASIDONE [Interacting]
     Active Substance: LURASIDONE
     Indication: DEPRESSION
     Route: 065
     Dates: start: 20190301, end: 20190722
  3. PANTOPRAZOLE [Interacting]
     Active Substance: PANTOPRAZOLE
     Indication: PRODUCT USED FOR UNKNOWN INDICATION
     Route: 065
  4. DELORAZEPAM [Interacting]
     Active Substance: DELORAZEPAM
     Indication: PRODUCT USED FOR UNKNOWN INDICATION
     Route: 065
  5. MACROGOL [Interacting]
     Active Substance: POLYETHYLENE GLYCOLS
     Indication: PRODUCT USED FOR UNKNOWN INDICATION
  6. BETAHISTINE [Interacting]
     Active Substance: BETAHISTINE
     Indication: PRODUCT USED FOR UNKNOWN INDICATION
     Route: 065
  7. ROSUVASTATIN. [Interacting]
     Active Substance: ROSUVASTATIN
     Indication: PRODUCT USED FOR UNKNOWN INDICATION
     Dates: end: 20190729
  8. FENOFIBRATE. [Interacting]
     Active Substance: FENOFIBRATE
     Indication: PRODUCT USED FOR UNKNOWN INDICATION
     Route: 065
     Dates: end: 20190729
  9. OLMESARTAN/AMLODIPINE [Interacting]
     Active Substance: AMLODIPINE BESYLATE\OLMESARTAN MEDOXOMIL
     Indication: PRODUCT USED FOR UNKNOWN INDICATION
     Route: 065
  10. BIPERIDEN [Interacting]
     Active Substance: BIPERIDEN
     Indication: PRODUCT USED FOR UNKNOWN INDICATION
     Route: 005
  11. SERTRALINE [Suspect]
     Active Substance: SERTRALINE HYDROCHLORIDE
     Indication: DEPRESSION
     Route: 048
  12. GANCICLOVIR. [Interacting]
     Active Substance: GANCICLOVIR
     Indication: PRODUCT USED FOR UNKNOWN INDICATION
  13. ADEMETIONINE/ADEMETIONINE CHLORIDE/ADEMETIONINE DISULFATE DITOSYL/ADEMETIONINE TOSILATE SULFATE [Interacting]
     Active Substance: ADEMETIONINE
     Indication: DEPRESSION
     Route: 065
     Dates: end: 20190729

REACTIONS (15)
  - Nystagmus [Recovered/Resolved with Sequelae]
  - Rhabdomyolysis [Recovered/Resolved]
  - Bone marrow toxicity [Recovered/Resolved]
  - Dyskinesia [Recovered/Resolved with Sequelae]
  - Mood altered [Recovering/Resolving]
  - Renal failure [Recovered/Resolved]
  - Drug interaction [Unknown]
  - Agitation [Recovering/Resolving]
  - Confabulation [Recovered/Resolved with Sequelae]
  - Clonus [Recovered/Resolved]
  - Tachycardia [Recovered/Resolved]
  - Pyrexia [Recovered/Resolved with Sequelae]
  - Confusional state [Recovered/Resolved]
  - Tachypnoea [Recovered/Resolved]
  - Serotonin syndrome [Recovered/Resolved]

NARRATIVE: CASE EVENT DATE: 20190729
